FAERS Safety Report 10056857 (Version 1)
Quarter: 2014Q2

REPORT INFORMATION
  Report Type: Spontaneous
  Country: FR (occurrence: FR)
  Receive Date: 20140403
  Receipt Date: 20140403
  Transmission Date: 20141212
  Serious: No
  Sender: FDA-Public Use
  Company Number: FR-009507513-1402FRA009048

PATIENT
  Age: 84 Year
  Sex: Male

DRUGS (1)
  1. DIPROSONE [Suspect]
     Dosage: UNK
     Route: 047
     Dates: start: 20140218, end: 20140218

REACTIONS (3)
  - Incorrect route of drug administration [Unknown]
  - Eye pain [Recovered/Resolved]
  - Conjunctival hyperaemia [Unknown]
